FAERS Safety Report 9825214 (Version 1)
Quarter: 2014Q1

REPORT INFORMATION
  Report Type: Report from Study
  Country: US (occurrence: US)
  Receive Date: 20140117
  Receipt Date: 20140117
  Transmission Date: 20141002
  Serious: Yes (Hospitalization, Other)
  Sender: FDA-Public Use
  Company Number: US-ROCHE-1329353

PATIENT
  Age: 64 Year
  Sex: Female

DRUGS (8)
  1. HERCEPTIN [Suspect]
     Indication: HER-2 POSITIVE BREAST CANCER
     Route: 042
     Dates: start: 20130405, end: 20130608
  2. HERCEPTIN [Suspect]
     Route: 042
     Dates: start: 20131206
  3. PERJETA [Suspect]
     Indication: BREAST CANCER
     Route: 042
     Dates: start: 20130405, end: 20130608
  4. TAXOTERE [Suspect]
     Indication: BREAST CANCER
     Route: 042
     Dates: start: 20130405, end: 20130608
  5. ABRAXANE [Suspect]
     Indication: HER-2 POSITIVE BREAST CANCER
     Route: 042
     Dates: start: 20131206
  6. ABRAXANE [Suspect]
     Route: 042
     Dates: start: 20131216
  7. ABRAXANE [Suspect]
     Route: 042
     Dates: start: 20131223
  8. ABRAXANE [Suspect]
     Route: 042
     Dates: start: 20131230, end: 20131230

REACTIONS (17)
  - Infection [Unknown]
  - Neoplasm [Unknown]
  - Neoplasm [Unknown]
  - Cough [Unknown]
  - Nausea [Recovered/Resolved]
  - Dysphonia [Unknown]
  - Epistaxis [Unknown]
  - Dry mouth [Unknown]
  - Breast ulceration [Unknown]
  - Fungal skin infection [Unknown]
  - Pruritus [Unknown]
  - Rash [Unknown]
  - Feeling abnormal [Unknown]
  - Saliva altered [Unknown]
  - Diarrhoea [Unknown]
  - Urinary lipids present [Unknown]
  - Neoplasm progression [Unknown]
